FAERS Safety Report 13039935 (Version 2)
Quarter: 2016Q4

REPORT INFORMATION
  Report Type: Spontaneous
  Country: PH (occurrence: PH)
  Receive Date: 20161219
  Receipt Date: 20161223
  Transmission Date: 20170207
  Serious: Yes (Other)
  Sender: FDA-Public Use
  Company Number: PH-009507513-1612PHL008303

PATIENT

DRUGS (1)
  1. KEYTRUDA [Suspect]
     Active Substance: PEMBROLIZUMAB
     Indication: INTRAOCULAR MELANOMA
     Dosage: UNK

REACTIONS (1)
  - Tumour pseudoprogression [Unknown]
